FAERS Safety Report 16984828 (Version 1)
Quarter: 2019Q4

REPORT INFORMATION
  Report Type: Spontaneous
  Country: JP (occurrence: JP)
  Receive Date: 20191101
  Receipt Date: 20191101
  Transmission Date: 20200122
  Serious: Yes (Other)
  Sender: FDA-Public Use
  Company Number: JP-ANIPHARMA-2019-JP-000210

PATIENT
  Age: 84 Year
  Sex: Male

DRUGS (11)
  1. CANDESARTAN CILEXETIL. [Suspect]
     Active Substance: CANDESARTAN CILEXETIL
     Indication: PRODUCT USED FOR UNKNOWN INDICATION
     Dosage: 8, 1 DF
     Route: 048
  2. METFORMIN HYDROCHLORIDE. [Suspect]
     Active Substance: METFORMIN HYDROCHLORIDE
     Dosage: 1 DF BID
     Route: 048
  3. CELECOX [Suspect]
     Active Substance: CELECOXIB
     Dosage: 1 DF BID
     Route: 048
  4. TRAZENTA [Suspect]
     Active Substance: LINAGLIPTIN
     Dosage: 1 DF UNK
     Route: 048
  5. GLIBENCLAMIDE [Suspect]
     Active Substance: GLYBURIDE
     Dosage: 1 DF DAILY
     Route: 048
  6. VOGLIBOSE [Suspect]
     Active Substance: VOGLIBOSE
     Dosage: 0.2, THREE TIMES A DAY
     Route: 048
  7. LIVALO [Suspect]
     Active Substance: PITAVASTATIN CALCIUM
     Dosage: 1 DF QD
     Route: 048
  8. LYRICA [Suspect]
     Active Substance: PREGABALIN
     Dosage: 25 MG BID / 25 MG DAILY / 150 MG DAILY
     Route: 048
     Dates: start: 20181211
  9. NORVASC [Suspect]
     Active Substance: AMLODIPINE BESYLATE
     Dosage: 1 DF
     Route: 048
  10. TAKECAB [Suspect]
     Active Substance: VONOPRAZAN FUMURATE
     Dosage: 1 DF QD
     Route: 048
  11. ODYNE [Suspect]
     Active Substance: FLUTAMIDE
     Dosage: 1 DF TID
     Route: 048

REACTIONS (2)
  - Visual impairment [Recovered/Resolved]
  - Cataract [Unknown]

NARRATIVE: CASE EVENT DATE: 201908
